FAERS Safety Report 4419985-2 (Version None)
Quarter: 2004Q3

REPORT INFORMATION
  Report Type: 
  Country: None (occurrence: None)
  Receive Date: 20040809
  Receipt Date: 20040318
  Transmission Date: 20050211
  Serious: No
  Sender: FDA-Public Use
  Company Number: US-GLAXOSMITHKLINE-A0503432A

PATIENT
  Age: 68 Year
  Sex: Female

DRUGS (6)
  1. PAXIL [Suspect]
     Dosage: 10MG PER DAY
     Route: 048
     Dates: start: 20010101
  2. PREMARIN [Concomitant]
  3. NORVASC [Concomitant]
  4. CLARITIN [Concomitant]
  5. LEVOXYL [Concomitant]
  6. VIOXX [Concomitant]

REACTIONS (2)
  - ABNORMAL DREAMS [None]
  - DISORIENTATION [None]
